FAERS Safety Report 24098536 (Version 1)
Quarter: 2024Q3

REPORT INFORMATION
  Report Type: Spontaneous
  Country: US (occurrence: US)
  Receive Date: 20240716
  Receipt Date: 20240716
  Transmission Date: 20241017
  Serious: No
  Sender: Harrow Health
  Company Number: US-IMP-2024000414

PATIENT
  Age: 73 Year
  Sex: Female

DRUGS (1)
  1. VEVYE [Suspect]
     Active Substance: CYCLOSPORINE
     Indication: Product used for unknown indication
     Route: 065
     Dates: start: 20240410, end: 20240412

REACTIONS (4)
  - Eye pain [Unknown]
  - Eye irritation [Unknown]
  - Eye swelling [Unknown]
  - Product use issue [Unknown]

NARRATIVE: CASE EVENT DATE: 20240410
